FAERS Safety Report 10495180 (Version 1)
Quarter: 2014Q3

REPORT INFORMATION
  Report Type: Spontaneous
  Country: US (occurrence: None)
  Receive Date: 20140815
  Receipt Date: 20140815
  Transmission Date: 20150326
  Serious: Yes (Life-Threatening, Hospitalization, Other)
  Sender: FDA-Public Use
  Company Number: ADR-2014-00393

PATIENT

DRUGS (2)
  1. BACLOFEN INTRATHECAL [Suspect]
     Active Substance: BACLOFEN
  2. ATROPINE [Suspect]
     Active Substance: ATROPINE

REACTIONS (5)
  - Sedation [None]
  - No therapeutic response [None]
  - Respiratory depression [None]
  - Drug withdrawal syndrome [None]
  - Coma [None]

NARRATIVE: CASE EVENT DATE: 20130722
